FAERS Safety Report 23754653 (Version 1)
Quarter: 2024Q2

REPORT INFORMATION
  Report Type: Spontaneous
  Country: US (occurrence: US)
  Receive Date: 20240418
  Receipt Date: 20240418
  Transmission Date: 20240716
  Serious: Yes (Hospitalization, Other)
  Sender: FDA-Public Use
  Company Number: US-MLMSERVICE-20240328-4918829-1

PATIENT
  Age: 33 Year
  Sex: Male

DRUGS (2)
  1. TESTOSTERONE [Suspect]
     Active Substance: TESTOSTERONE
     Indication: Muscle building therapy
     Dosage: 250 MILLIGRAM, EVERY WEEK
     Route: 065
  2. TESTOSTERONE [Suspect]
     Active Substance: TESTOSTERONE
     Dosage: 300 MILLIGRAM, EVERY WEEK
     Route: 065

REACTIONS (2)
  - Coronary artery thrombosis [Unknown]
  - Acute myocardial infarction [Recovering/Resolving]
